FAERS Safety Report 19584070 (Version 2)
Quarter: 2021Q4

REPORT INFORMATION
  Report Type: Spontaneous
  Country: DE (occurrence: DE)
  Receive Date: 20210720
  Receipt Date: 20211026
  Transmission Date: 20220303
  Serious: Yes (Life-Threatening, Other)
  Sender: FDA-Public Use
  Company Number: DE-RIEMSER-20210011

PATIENT
  Age: 72 Year
  Sex: Male

DRUGS (1)
  1. SPIRONOLACTONE [Suspect]
     Active Substance: SPIRONOLACTONE
     Indication: Product used for unknown indication
     Dosage: UNK, LONG-TERM TREATMENT

REACTIONS (5)
  - Double hit lymphoma [Unknown]
  - Testicular swelling [Unknown]
  - Lymphadenopathy [Unknown]
  - Burkitt^s lymphoma [Unknown]
  - Gynaecomastia [Unknown]
